APPROVED DRUG PRODUCT: LEUCOVORIN CALCIUM PRESERVATIVE FREE
Active Ingredient: LEUCOVORIN CALCIUM
Strength: EQ 250MG BASE/25ML (EQ 10MG BASE/ML)
Dosage Form/Route: SOLUTION;INTRAMUSCULAR, INTRAVENOUS
Application: A040147 | Product #002
Applicant: HOSPIRA INC
Approved: Jun 25, 1997 | RLD: No | RS: No | Type: DISCN